FAERS Safety Report 5267021-0 (Version None)
Quarter: 2007Q1

REPORT INFORMATION
  Report Type: 
  Country: None (occurrence: None)
  Receive Date: 20070312
  Receipt Date: 20070227
  Transmission Date: 20070707
  Serious: Yes (Other)
  Sender: FDA-Public Use
  Company Number: 2007-GWUS-0080

PATIENT
  Age: 76 Year
  Sex: Male

DRUGS (1)
  1. ALDARA [Suspect]
     Indication: ACTINIC KERATOSIS
     Dosage: APPLICATION  - 3XW - TOPICAL
     Route: 061

REACTIONS (1)
  - NEUROENDOCRINE CARCINOMA OF THE SKIN [None]
